FAERS Safety Report 19991326 (Version 3)
Quarter: 2022Q1

REPORT INFORMATION
  Report Type: Report from Study
  Country: TR (occurrence: TR)
  Receive Date: 20211025
  Receipt Date: 20220121
  Transmission Date: 20220423
  Serious: Yes (Death, Other)
  Sender: FDA-Public Use
  Company Number: TR-CELGENE-TUR-20211006007

PATIENT

DRUGS (2)
  1. REVLIMID [Suspect]
     Active Substance: LENALIDOMIDE
     Indication: Plasma cell myeloma
     Dosage: 15 MILLIGRAM
     Route: 048
     Dates: start: 20170413
  2. ASPIRIN [Concomitant]
     Active Substance: ASPIRIN
     Indication: Prophylaxis
     Dosage: 100 MILLIGRAM
     Route: 065
     Dates: start: 20170413, end: 20171207

REACTIONS (2)
  - Plasma cell myeloma [Fatal]
  - Acute kidney injury [Unknown]

NARRATIVE: CASE EVENT DATE: 20171207
